FAERS Safety Report 9131448 (Version 1)
Quarter: 2013Q1

REPORT INFORMATION
  Report Type: Report from Study
  Country: US (occurrence: US)
  Receive Date: 20130301
  Receipt Date: 20130301
  Transmission Date: 20140127
  Serious: No
  Sender: FDA-Public Use
  Company Number: US-MYLANLABS-2012S1005122

PATIENT
  Sex: Male
  Weight: 97.52 kg

DRUGS (3)
  1. CLARAVIS [Suspect]
     Indication: ACNE CYSTIC
     Dates: start: 20111027
  2. CLARAVIS [Suspect]
     Indication: ACNE CYSTIC
  3. AMNESTEEM CAPSULES [Suspect]
     Indication: ACNE CYSTIC
     Dates: end: 20120208

REACTIONS (2)
  - Hallucination, auditory [Not Recovered/Not Resolved]
  - Tinnitus [Not Recovered/Not Resolved]
